FAERS Safety Report 7950052-7 (Version None)
Quarter: 2011Q4

REPORT INFORMATION
  Report Type: 
  Country: None (occurrence: None)
  Receive Date: 20111130
  Receipt Date: 20111121
  Transmission Date: 20120403
  Serious: No
  Sender: FDA-Public Use
  Company Number: US-B.I. PHARMACEUTICALS,INC./RIDGEFIELD-2011-BP-26691BP

PATIENT
  Sex: Female

DRUGS (3)
  1. ATENOLOL [Concomitant]
     Indication: ATRIAL FIBRILLATION
     Dosage: 12.5 MG
     Route: 048
  2. PRADAXA [Suspect]
     Indication: ATRIAL FIBRILLATION
     Dosage: 300 MG
     Route: 048
     Dates: start: 20111104
  3. ESTRACE [Concomitant]
     Indication: HORMONE REPLACEMENT THERAPY
     Dosage: 1 MG
     Route: 048

REACTIONS (1)
  - DIZZINESS [None]
